FAERS Safety Report 8967709 (Version 1)
Quarter: 2012Q4

REPORT INFORMATION
  Report Type: Spontaneous
  Country: MA (occurrence: None)
  Receive Date: 20121207
  Receipt Date: 20121207
  Transmission Date: 20130627
  Serious: Yes (Hospitalization)
  Sender: FDA-Public Use
  Company Number: DSA_61173_2012

PATIENT
  Age: 39 Year
  Sex: Female

DRUGS (1)
  1. METRONIDAZOLE (METRONIDAZOLE) [Suspect]
     Indication: PRODUCT USED FOR UNKNOWN INDICATION
     Dosage: (DF Vaginal)
(Unknown until not continuing)
     Route: 067

REACTIONS (1)
  - Acute generalised exanthematous pustulosis [None]
